FAERS Safety Report 4825671-7 (Version None)
Quarter: 2005Q4

REPORT INFORMATION
  Report Type: 
  Country: None (occurrence: None)
  Receive Date: 20051111
  Receipt Date: 20051101
  Transmission Date: 20060501
  Serious: Yes (Death)
  Sender: FDA-Public Use
  Company Number: VE-ABBOTT-05P-178-0316471-00

PATIENT
  Sex: Female
  Weight: 55.5 kg

DRUGS (8)
  1. ZEMPLAR [Suspect]
     Indication: HYPERPARATHYROIDISM SECONDARY
     Route: 042
     Dates: start: 20050915, end: 20051027
  2. CALCIUM CARBONATE [Concomitant]
     Indication: MINERAL SUPPLEMENTATION
     Route: 048
     Dates: start: 19940101
  3. FOLIC ACID [Concomitant]
     Indication: VITAMIN SUPPLEMENTATION
     Route: 048
  4. ORPHENADRINE [Concomitant]
     Indication: MUSCLE RELAXANT THERAPY
     Route: 048
  5. IBUPROFEN [Concomitant]
     Indication: MYALGIA
     Route: 048
  6. OMEPRAZOLE [Concomitant]
     Indication: ANTACID THERAPY
     Route: 048
  7. MULTIVITMAIN (BENUTREX) [Concomitant]
     Indication: VITAMIN SUPPLEMENTATION
     Route: 048
  8. HEPARIN [Concomitant]
     Indication: ANTICOAGULANT THERAPY
     Route: 042

REACTIONS (1)
  - MYOCARDIAL INFARCTION [None]
